FAERS Safety Report 5518961-6 (Version None)
Quarter: 2007Q4

REPORT INFORMATION
  Report Type: 
  Country: None (occurrence: None)
  Receive Date: 20071114
  Receipt Date: 20071114
  Transmission Date: 20080405
  Serious: Yes (Life-Threatening)
  Sender: FDA-Public Use
  Company Number: None

PATIENT
  Age: 75 Year
  Sex: Female

DRUGS (7)
  1. LEVAQUIN [Suspect]
     Indication: COUGH
     Dosage: PO  1 DOSE
     Route: 048
     Dates: start: 20061013, end: 20061013
  2. BENICAR [Concomitant]
  3. PREVACID [Concomitant]
  4. ALTACE [Concomitant]
  5. LESCOL [Concomitant]
  6. TRIFLUOPERAZINE [Concomitant]
  7. PINDOLOL [Concomitant]

REACTIONS (3)
  - APHASIA [None]
  - RESTLESSNESS [None]
  - SWOLLEN TONGUE [None]
